FAERS Safety Report 19783006 (Version 1)
Quarter: 2021Q3

REPORT INFORMATION
  Report Type: Spontaneous
  Country: US (occurrence: US)
  Receive Date: 20210903
  Receipt Date: 20210903
  Transmission Date: 20211014
  Serious: No
  Sender: FDA-Public Use
  Company Number: US-CIPLA LTD.-2021US04478

PATIENT

DRUGS (5)
  1. ATAZANAVIR. [Suspect]
     Active Substance: ATAZANAVIR
     Indication: ANTIRETROVIRAL THERAPY
     Dosage: UNK, QD, COURSE ONE
     Route: 048
  2. ZIDOVUDINE. [Suspect]
     Active Substance: ZIDOVUDINE
     Indication: ANTIRETROVIRAL THERAPY
     Dosage: UNK, BID, COURSE 2
     Route: 042
  3. BICTEGRAVIR;EMTRICITABINE;TENOFOVIR ALAFENAMIDE [Suspect]
     Active Substance: BICTEGRAVIR\EMTRICITABINE\TENOFOVIR ALAFENAMIDE
     Indication: ANTIRETROVIRAL THERAPY
     Dosage: UNK, QD, COURSE 1
     Route: 048
  4. ZIDOVUDINE. [Suspect]
     Active Substance: ZIDOVUDINE
     Dosage: UNK, QD, COURSE 1
     Route: 042
  5. RITONAVIR. [Suspect]
     Active Substance: RITONAVIR
     Indication: ANTIRETROVIRAL THERAPY
     Dosage: UNK, QD, COURSE ONE
     Route: 048

REACTIONS (2)
  - No adverse event [Unknown]
  - Exposure during pregnancy [Unknown]
